FAERS Safety Report 7720285-3 (Version None)
Quarter: 2011Q3

REPORT INFORMATION
  Report Type: 
  Country: None (occurrence: None)
  Receive Date: 20110831
  Receipt Date: 20110819
  Transmission Date: 20111222
  Serious: Yes (Life-Threatening, Hospitalization)
  Sender: FDA-Public Use
  Company Number: FR-UCBSA-039699

PATIENT
  Age: 40 Year
  Sex: Female

DRUGS (4)
  1. VIMPAT [Suspect]
     Indication: EPILEPSY
     Route: 048
  2. ZONEGRAN [Suspect]
     Indication: EPILEPSY
     Route: 048
  3. TEGRETOL [Suspect]
     Indication: EPILEPSY
     Route: 048
  4. PHENOBARBITAL TAB [Suspect]
     Indication: EPILEPSY
     Route: 048

REACTIONS (5)
  - ANAEMIA MACROCYTIC [None]
  - NEUTROPENIA [None]
  - BLOOD ALKALINE PHOSPHATASE INCREASED [None]
  - LEUKOPENIA [None]
  - GAMMA-GLUTAMYLTRANSFERASE INCREASED [None]
